FAERS Safety Report 8177855-0 (Version None)
Quarter: 2012Q1

REPORT INFORMATION
  Report Type: 
  Country: None (occurrence: None)
  Receive Date: 20120301
  Receipt Date: 20111009
  Transmission Date: 20120608
  Serious: Yes (Hospitalization)
  Sender: FDA-Public Use
  Company Number: IT-ROCHE-1005096

PATIENT
  Sex: Female
  Weight: 60 kg

DRUGS (6)
  1. METHYLPREDNISOLONE [Suspect]
     Indication: RHEUMATOID ARTHRITIS
     Dosage: DAY 1 AND DAY 15. LAST DOSE PRIOR TO SAE: 15/DEC/2004
     Route: 042
     Dates: start: 20041201
  2. PREDNISONE TAB [Suspect]
     Dates: end: 20111004
  3. METHOTREXATE [Concomitant]
     Dates: start: 20030804, end: 20111004
  4. FOLINA [Concomitant]
     Dates: start: 20030805, end: 20111004
  5. PREDNISONE TAB [Suspect]
     Indication: RHEUMATOID ARTHRITIS
     Dosage: LAST DOSE PRIOR TO SAE: 14/DEC/2004
     Dates: start: 20041202
  6. MABTHERA [Suspect]
     Indication: RHEUMATOID ARTHRITIS
     Dosage: DAY 1 AND DAY 15. LAST DOSE PRIOR TO SAE: 15 DEC 2004
     Route: 042
     Dates: start: 20041201

REACTIONS (2)
  - LUNG ADENOCARCINOMA [None]
  - BREAST CANCER IN SITU [None]
